FAERS Safety Report 4766905-7 (Version None)
Quarter: 2005Q3

REPORT INFORMATION
  Report Type: 
  Country: None (occurrence: None)
  Receive Date: 20050909
  Receipt Date: 20040818
  Transmission Date: 20060218
  Serious: Yes (Other)
  Sender: FDA-Public Use
  Company Number: 2004229454US

PATIENT
  Sex: Female

DRUGS (1)
  1. CYTOTEC [Suspect]

REACTIONS (2)
  - HAEMORRHAGE [None]
  - UTERINE RUPTURE [None]
